FAERS Safety Report 6232671-1 (Version None)
Quarter: 2009Q2

REPORT INFORMATION
  Report Type: 
  Country: None (occurrence: None)
  Receive Date: 20090617
  Receipt Date: 20090615
  Transmission Date: 20091009
  Serious: Yes (Other)
  Sender: FDA-Public Use
  Company Number: MY-PFIZER INC-2009209081

PATIENT

DRUGS (1)
  1. SUNITINIB MALATE [Suspect]
     Indication: METASTATIC RENAL CELL CARCINOMA
     Dosage: 50 MG, UNK
     Route: 048
     Dates: start: 20081223

REACTIONS (1)
  - RENAL FAILURE [None]
